FAERS Safety Report 20177041 (Version 10)
Quarter: 2024Q2

REPORT INFORMATION
  Report Type: Report from Study
  Country: CA (occurrence: CA)
  Receive Date: 20211213
  Receipt Date: 20240503
  Transmission Date: 20240716
  Serious: Yes (Other)
  Sender: FDA-Public Use
  Company Number: CA-BAUSCH-BL-2020-030519

PATIENT
  Sex: Female

DRUGS (29)
  1. CONTRAVE [Suspect]
     Active Substance: BUPROPION HYDROCHLORIDE\NALTREXONE HYDROCHLORIDE
     Indication: Weight control
     Dosage: 90MG/8MG, 1 TABLET IN THE MORNING
     Route: 048
     Dates: start: 20200912, end: 20200918
  2. CONTRAVE [Suspect]
     Active Substance: BUPROPION HYDROCHLORIDE\NALTREXONE HYDROCHLORIDE
     Dosage: 90MG/ 8MG, 1 TABLET IN THE MORNING AND 1 TABLET IN THE EVENING
     Route: 048
     Dates: start: 20200919, end: 20200925
  3. CONTRAVE [Suspect]
     Active Substance: BUPROPION HYDROCHLORIDE\NALTREXONE HYDROCHLORIDE
     Dosage: 90MG/ 8MG, 2 TABLETS IN THE MORNING AND 1 TABLET IN THE EVENING (1 IN 12 HR)
     Route: 048
     Dates: start: 20200926, end: 20201002
  4. CONTRAVE [Suspect]
     Active Substance: BUPROPION HYDROCHLORIDE\NALTREXONE HYDROCHLORIDE
     Dosage: 90MG/ 8MG, 2 TABLETS IN THE MORNING AND 2 TABLETS IN THE EVENING
     Route: 048
     Dates: start: 20201003, end: 202010
  5. CONTRAVE [Suspect]
     Active Substance: BUPROPION HYDROCHLORIDE\NALTREXONE HYDROCHLORIDE
     Dosage: 90MG/ 8MG, 2 TABLETS IN THE MORNING AND 2 TABLETS IN THE EVENING
     Route: 048
     Dates: start: 2020, end: 20210219
  6. CONTRAVE [Suspect]
     Active Substance: BUPROPION HYDROCHLORIDE\NALTREXONE HYDROCHLORIDE
     Dosage: 90MG/ 8MG, 2 TABLETS IN THE MORNING AND 2 TABLETS IN THE EVENING
     Route: 048
     Dates: start: 2021, end: 2021
  7. CONTRAVE [Suspect]
     Active Substance: BUPROPION HYDROCHLORIDE\NALTREXONE HYDROCHLORIDE
     Dosage: 90/8MG, TAPERED DOSE (1 IN 12 HR)
     Route: 048
     Dates: start: 2021, end: 2021
  8. CONTRAVE [Suspect]
     Active Substance: BUPROPION HYDROCHLORIDE\NALTREXONE HYDROCHLORIDE
     Dosage: 90/8MG, TAPERED DOSE (1 DOSAGE FORMS,1 IN 12 HR)
     Route: 048
     Dates: start: 2021, end: 2021
  9. CONTRAVE [Suspect]
     Active Substance: BUPROPION HYDROCHLORIDE\NALTREXONE HYDROCHLORIDE
     Dosage: 90/8MG, TAPERED DOSE (1 DOSAGE FORMS,1 IN 24 HR)
     Route: 048
     Dates: start: 2021, end: 20211012
  10. CONTRAVE [Suspect]
     Active Substance: BUPROPION HYDROCHLORIDE\NALTREXONE HYDROCHLORIDE
     Dosage: 90MG/ 8MG
     Route: 048
     Dates: start: 2022, end: 2022
  11. CONTRAVE [Suspect]
     Active Substance: BUPROPION HYDROCHLORIDE\NALTREXONE HYDROCHLORIDE
     Dosage: 90MG/ 8MG, 2 TABLETS IN THE MORNING AND 2 TABLETS IN THE EVENING
     Route: 048
     Dates: start: 20220512
  12. CONTRAVE [Suspect]
     Active Substance: BUPROPION HYDROCHLORIDE\NALTREXONE HYDROCHLORIDE
     Dosage: 90MG/ 8MG, 2 TABLETS IN THE MORNING AND 1 TABLET IN THE EVENING (1 IN 12 HR)
     Route: 048
     Dates: start: 20221010
  13. CONTRAVE [Suspect]
     Active Substance: BUPROPION HYDROCHLORIDE\NALTREXONE HYDROCHLORIDE
     Dosage: 90MG/ 8MG, 1 TABLET IN THE MORNING AND 1 TABLET IN THE EVENING
     Route: 048
     Dates: start: 20221013
  14. CONTRAVE [Suspect]
     Active Substance: BUPROPION HYDROCHLORIDE\NALTREXONE HYDROCHLORIDE
     Dosage: 90MG/ 8MG, 2 TABLETS IN THE MORNING AND 2 TABLETS IN THE EVENING
     Route: 048
     Dates: start: 20221020
  15. CONTRAVE [Suspect]
     Active Substance: BUPROPION HYDROCHLORIDE\NALTREXONE HYDROCHLORIDE
     Dosage: 90/ 8MG, 4 TAB/DAY
     Route: 048
     Dates: start: 20230512
  16. HYDROMORPHONE [Interacting]
     Active Substance: HYDROMORPHONE
     Indication: Spinal pain
     Dosage: PRN (1 MG,1 IN 1 AS REQUIRED)
     Route: 048
     Dates: start: 20221013
  17. DIETARY SUPPLEMENT [Suspect]
     Active Substance: DIETARY SUPPLEMENT
     Indication: Product used for unknown indication
     Dosage: UNK
     Route: 065
  18. OZEMPIC [Suspect]
     Active Substance: SEMAGLUTIDE
     Indication: Product used for unknown indication
     Dosage: 0.1429 MG (1 MG,1 IN 1 WK)
     Route: 058
  19. NIFEDIPINE [Concomitant]
     Active Substance: NIFEDIPINE
     Indication: Hypertension
     Dosage: IN MORNING (30 MG, 1 IN 1 D)
     Route: 048
  20. PANTOPRAZOLE SODIUM [Concomitant]
     Active Substance: PANTOPRAZOLE SODIUM
     Indication: Gastrooesophageal reflux disease
     Dosage: IN MORNING (40 MG, 1 IN 1 D)
     Route: 048
  21. LEVOTHYROXINE [Concomitant]
     Active Substance: LEVOTHYROXINE\LEVOTHYROXINE SODIUM
     Indication: Hypothyroidism
     Dosage: IN MORNING (0.05 MG,1 IN 1 D)
     Route: 048
  22. LEVOTHYROXINE [Concomitant]
     Active Substance: LEVOTHYROXINE\LEVOTHYROXINE SODIUM
     Dosage: 0.075 MG,1 IN 1 D
     Route: 048
     Dates: start: 202004
  23. PREGABALIN [Concomitant]
     Active Substance: PREGABALIN
     Indication: Neuralgia
     Dosage: 100 MG (50 MG, 1 IN 12 HR)
     Route: 048
  24. PREGABALIN [Concomitant]
     Active Substance: PREGABALIN
     Dosage: 25 MG,1 IN 1 D
     Route: 048
     Dates: start: 202404
  25. REPATHA [Concomitant]
     Active Substance: EVOLOCUMAB
     Indication: Hypercholesterolaemia
     Dosage: 1 IN 2 WK
     Route: 058
  26. MAVIK [Concomitant]
     Active Substance: TRANDOLAPRIL
     Indication: Blood pressure abnormal
     Dosage: AT NIGHT (4 MG, 1 IN 1 D)
  27. INDAPAMIDE [Concomitant]
     Active Substance: INDAPAMIDE
     Indication: Hypertension
     Dosage: AT NIGHT (1.25 MG,1 IN 1 D)
  28. NAPROXEN [Concomitant]
     Active Substance: NAPROXEN
     Indication: Pain
     Dosage: 1 TABLET TWICE PER DAY AS NECESSARY (500 MG,1 IN 12HR)
  29. MINERALS\VITAMINS [Concomitant]
     Active Substance: MINERALS\VITAMINS
     Indication: Macular degeneration
     Dosage: 1 IN 12 HR

REACTIONS (31)
  - Clostridium difficile infection [Unknown]
  - Faecaloma [Unknown]
  - Lordosis [Unknown]
  - Muscle injury [Recovered/Resolved]
  - Weight fluctuation [Unknown]
  - Wheezing [Recovered/Resolved]
  - Hypothyroidism [Unknown]
  - Tissue rupture [Not Recovered/Not Resolved]
  - Nerve compression [Not Recovered/Not Resolved]
  - Pulmonary pain [Not Recovered/Not Resolved]
  - Arthritis [Not Recovered/Not Resolved]
  - Nasopharyngitis [Not Recovered/Not Resolved]
  - Weight increased [Unknown]
  - Fluid retention [Recovered/Resolved]
  - Hunger [Unknown]
  - COVID-19 [Unknown]
  - Procedural pain [Unknown]
  - Abdominal discomfort [Recovering/Resolving]
  - Insomnia [Not Recovered/Not Resolved]
  - Alopecia [Unknown]
  - Tinnitus [Not Recovered/Not Resolved]
  - Nausea [Not Recovered/Not Resolved]
  - Constipation [Not Recovered/Not Resolved]
  - Fatigue [Not Recovered/Not Resolved]
  - Product dose omission in error [Unknown]
  - Product availability issue [Unknown]
  - Product use issue [Unknown]
  - Patient dissatisfaction with treatment [Unknown]
  - Intentional product use issue [Unknown]
  - Contraindicated product administered [Unknown]
  - Labelled drug-drug interaction issue [Unknown]

NARRATIVE: CASE EVENT DATE: 20200101
